FAERS Safety Report 6420988-7 (Version None)
Quarter: 2009Q4

REPORT INFORMATION
  Report Type: 
  Country: None (occurrence: None)
  Receive Date: 20091030
  Receipt Date: 20091020
  Transmission Date: 20100525
  Serious: Yes (Hospitalization)
  Sender: FDA-Public Use
  Company Number: ES-ROCHE-663403

PATIENT
  Age: 58 Year
  Sex: Male

DRUGS (7)
  1. RIVOTRIL [Suspect]
     Indication: OBSESSIVE-COMPULSIVE DISORDER
     Route: 048
     Dates: start: 20080101, end: 20090705
  2. DEPAKENE [Suspect]
     Dosage: TOOK 20 TABS OF 500 MG (OVERDOSE)
     Route: 048
     Dates: start: 20090705, end: 20090705
  3. DEPAKENE [Suspect]
     Route: 048
     Dates: start: 20080101, end: 20090704
  4. ETUMINE [Suspect]
     Indication: OBSESSIVE-COMPULSIVE DISORDER
     Route: 048
     Dates: start: 20080101, end: 20090705
  5. MIRTAZAPINE [Suspect]
     Indication: OBSESSIVE-COMPULSIVE DISORDER
     Route: 048
     Dates: start: 20080101, end: 20090705
  6. ZYPREXA [Suspect]
     Indication: OBSESSIVE-COMPULSIVE DISORDER
     Dosage: TAKEN DAILY
     Route: 065
     Dates: start: 20080101, end: 20090705
  7. ENALAPRIL [Concomitant]
     Indication: HYPERTENSION
     Route: 048

REACTIONS (5)
  - HYPOCALCAEMIA [None]
  - HYPOMAGNESAEMIA [None]
  - PANCYTOPENIA [None]
  - SUICIDE ATTEMPT [None]
  - TOXIC ENCEPHALOPATHY [None]
